FAERS Safety Report 10901606 (Version 1)
Quarter: 2015Q1

REPORT INFORMATION
  Report Type: Spontaneous
  Country: US (occurrence: None)
  Receive Date: 20150303
  Receipt Date: 20150303
  Transmission Date: 20150721
  Serious: No
  Sender: FDA-Public Use
  Company Number: None

PATIENT
  Age: 55 Year
  Sex: Male
  Weight: 98.88 kg

DRUGS (2)
  1. SYSTHOID [Concomitant]
  2. LISINOPRIL. [Suspect]
     Active Substance: LISINOPRIL
     Indication: HYPERTENSION
     Dosage: 1, ONCE DAILY, TAKEN BY MOUTH
     Route: 048
     Dates: start: 20141202, end: 20150301

REACTIONS (6)
  - Erectile dysfunction [None]
  - Asthenia [None]
  - Drug dose omission [None]
  - Libido decreased [None]
  - Headache [None]
  - Rash [None]

NARRATIVE: CASE EVENT DATE: 20150301
